FAERS Safety Report 8798366 (Version 2)
Quarter: 2012Q4

REPORT INFORMATION
  Report Type: 
  Country: FR (occurrence: FR)
  Receive Date: 20120920
  Receipt Date: 20121129
  Transmission Date: 20130627
  Serious: Yes (Hospitalization, Other)
  Sender: FDA-Public Use
  Company Number: FR-BAYER-2012-095714

PATIENT
  Age: 37 Year
  Sex: Female
  Weight: 83.9 kg

DRUGS (1)
  1. MIRENA [Suspect]
     Dosage: 20 mcg/24hr, CONT
     Route: 015
     Dates: start: 20120711

REACTIONS (8)
  - Migraine with aura [None]
  - Aphasia [None]
  - Vomiting [None]
  - Phonophobia [None]
  - Visual impairment [None]
  - Migraine with aura [None]
  - Paraesthesia [None]
  - Dysarthria [None]
